FAERS Safety Report 6707907-0 (Version None)
Quarter: 2010Q2

REPORT INFORMATION
  Report Type: 
  Country: None (occurrence: None)
  Receive Date: 20100503
  Receipt Date: 20090824
  Transmission Date: 20101027
  Serious: No
  Sender: FDA-Public Use
  Company Number: US-ASTRAZENECA-2009UW20161

PATIENT
  Age: 67 Year
  Sex: Female
  Weight: 73 kg

DRUGS (8)
  1. NEXIUM [Suspect]
     Route: 048
     Dates: start: 20080301, end: 20080701
  2. NEXIUM [Suspect]
     Route: 048
     Dates: start: 20081201
  3. CRESTOR [Concomitant]
  4. OMEPRAZOLE [Concomitant]
  5. ALENDRONATE [Concomitant]
  6. GLYBURIDE [Concomitant]
  7. PLAVIX [Concomitant]
  8. SYNTHROID [Concomitant]

REACTIONS (9)
  - CHOKING [None]
  - DISCOMFORT [None]
  - DRY MOUTH [None]
  - DRY THROAT [None]
  - DYSPNOEA [None]
  - GASTRITIS [None]
  - GASTROOESOPHAGEAL REFLUX DISEASE [None]
  - SENSATION OF FOREIGN BODY [None]
  - THIRST [None]
